FAERS Safety Report 14418157 (Version 1)
Quarter: 2018Q1

REPORT INFORMATION
  Report Type: Spontaneous
  Country: US (occurrence: US)
  Receive Date: 20180119
  Receipt Date: 20180119
  Transmission Date: 20180509
  Serious: Yes (Other)
  Sender: FDA-Public Use
  Company Number: None

PATIENT
  Age: 47 Year
  Sex: Female

DRUGS (2)
  1. VIVITROL [Suspect]
     Active Substance: NALTREXONE
     Indication: PROPHYLAXIS
     Dosage: ?          OTHER FREQUENCY:MONTHLY;?
     Route: 030
     Dates: start: 20180102, end: 20180118
  2. VIVITROL [Suspect]
     Active Substance: NALTREXONE
     Indication: ALCOHOL REHABILITATION
     Dosage: ?          OTHER FREQUENCY:MONTHLY;?
     Route: 030
     Dates: start: 20180102, end: 20180118

REACTIONS (4)
  - Injection site warmth [None]
  - Injection site swelling [None]
  - Injection site pain [None]
  - Injection site cellulitis [None]

NARRATIVE: CASE EVENT DATE: 20180113
